FAERS Safety Report 17348399 (Version 10)
Quarter: 2020Q4

REPORT INFORMATION
  Report Type: Report from Study
  Country: US (occurrence: US)
  Receive Date: 20200130
  Receipt Date: 20201128
  Transmission Date: 20210113
  Serious: Yes (Other)
  Sender: FDA-Public Use
  Company Number: NVSC2020US023957

PATIENT
  Age: 85 Year
  Sex: Male

DRUGS (2)
  1. BEOVU [Suspect]
     Active Substance: BROLUCIZUMAB-DBLL
     Indication: NEOVASCULAR AGE-RELATED MACULAR DEGENERATION
     Dosage: UNK
     Route: 047
     Dates: start: 20191125
  2. BEOVU [Suspect]
     Active Substance: BROLUCIZUMAB-DBLL
     Dosage: UNK, IN BOTH EYES
     Route: 047
     Dates: start: 20200518

REACTIONS (9)
  - Multiple sclerosis [Unknown]
  - Hypoacusis [Not Recovered/Not Resolved]
  - Intra-ocular injection complication [Unknown]
  - Eye disorder [Unknown]
  - Immune system disorder [Unknown]
  - Metamorphopsia [Unknown]
  - Drug ineffective [Unknown]
  - Eye inflammation [Recovering/Resolving]
  - Product dose omission issue [Unknown]

NARRATIVE: CASE EVENT DATE: 20200127
